FAERS Safety Report 17716607 (Version 1)
Quarter: 2020Q2

REPORT INFORMATION
  Report Type: Spontaneous
  Country: US (occurrence: US)
  Receive Date: 20200428
  Receipt Date: 20200428
  Transmission Date: 20200714
  Serious: No
  Sender: FDA-Public Use
  Company Number: US-009507513-2004USA007256

PATIENT
  Sex: Female

DRUGS (1)
  1. ETONOGESTREL (+) ETHINYL ESTRADIOL [Suspect]
     Active Substance: ETHINYL ESTRADIOL\ETONOGESTREL
     Dosage: RING
     Route: 067
     Dates: start: 20200417, end: 20200421

REACTIONS (3)
  - Device expulsion [Unknown]
  - Inappropriate schedule of product administration [Unknown]
  - Device breakage [Unknown]

NARRATIVE: CASE EVENT DATE: 20200421
